FAERS Safety Report 10577287 (Version 1)
Quarter: 2014Q4

REPORT INFORMATION
  Report Type: Spontaneous
  Country: IT (occurrence: IT)
  Receive Date: 20141111
  Receipt Date: 20141111
  Transmission Date: 20150529
  Serious: Yes (Hospitalization)
  Sender: FDA-Public Use
  Company Number: IT-TEVA-520508ISR

PATIENT
  Age: 43 Year
  Sex: Female

DRUGS (4)
  1. PAROXETINE [Suspect]
     Active Substance: PAROXETINE\PAROXETINE HYDROCHLORIDE
     Indication: SUICIDE ATTEMPT
     Dosage: 1120 MG TOTAL
     Route: 048
     Dates: start: 20141029, end: 20141029
  2. EN - 1 MG/ML GOCCE ORALI, SOLUZIONE - ABBOTT S.R.L. [Suspect]
     Active Substance: DELORAZEPAM
     Indication: SUICIDE ATTEMPT
     Dosage: 20 ML TOTAL
     Route: 048
     Dates: start: 20141029, end: 20141029
  3. SEROQUEL - 100 MG COMPRESSE RIVESTITE CON FILM [Concomitant]
     Indication: PRODUCT USED FOR UNKNOWN INDICATION
  4. DEPAKIN CHRONO - 500 MG COMPRESSE A RILASCIO PROLUNGATO - BB FARMA SRL [Suspect]
     Active Substance: VALPROIC ACID
     Indication: SUICIDE ATTEMPT
     Dosage: 1 DF TOTAL
     Route: 048
     Dates: start: 20141029, end: 20141029

REACTIONS (3)
  - Suicide attempt [Recovering/Resolving]
  - Drug abuse [Recovering/Resolving]
  - Sopor [Recovering/Resolving]

NARRATIVE: CASE EVENT DATE: 20141029
